FAERS Safety Report 6394576-5 (Version None)
Quarter: 2009Q4

REPORT INFORMATION
  Report Type: 
  Country: None (occurrence: None)
  Receive Date: 20091009
  Receipt Date: 20090928
  Transmission Date: 20100525
  Serious: Yes (Other)
  Sender: FDA-Public Use
  Company Number: US-JNJFOC-20091000267

PATIENT
  Age: 26 Month
  Sex: Female
  Weight: 12.7 kg

DRUGS (2)
  1. TYLENOL (CAPLET) [Suspect]
     Route: 048
  2. TYLENOL (CAPLET) [Suspect]
     Indication: MALAISE
     Route: 048

REACTIONS (5)
  - DIARRHOEA [None]
  - IRRITABILITY [None]
  - MIDDLE INSOMNIA [None]
  - RASH [None]
  - TRANSMISSION OF AN INFECTIOUS AGENT VIA A MEDICINAL PRODUCT [None]
